FAERS Safety Report 6763506-6 (Version None)
Quarter: 2010Q2

REPORT INFORMATION
  Report Type: 
  Country: None (occurrence: None)
  Receive Date: 20100610
  Receipt Date: 20100603
  Transmission Date: 20101027
  Serious: Yes (Other)
  Sender: FDA-Public Use
  Company Number: GB-JNJCH-2010013544

PATIENT
  Sex: Female

DRUGS (2)
  1. LISTERINE TOTAL CARE [Suspect]
     Indication: DRUG USE FOR UNKNOWN INDICATION
     Dosage: TEXT:UNSPECIFIED
     Route: 048
  2. LISTERINE TOTAL CARE SENSITIVE [Suspect]
     Indication: DRUG USE FOR UNKNOWN INDICATION
     Dosage: TEXT:UNSPECIFIED
     Route: 048

REACTIONS (2)
  - DEPENDENCE [None]
  - TOOTH DISCOLOURATION [None]
